FAERS Safety Report 15579384 (Version 1)
Quarter: 2018Q4

REPORT INFORMATION
  Report Type: Spontaneous
  Country: CN (occurrence: CN)
  Receive Date: 20181102
  Receipt Date: 20181102
  Transmission Date: 20190205
  Serious: Yes (Other)
  Sender: FDA-Public Use
  Company Number: CN-PFIZER INC-2018445044

PATIENT
  Age: 28 Year
  Sex: Female
  Weight: 66.1 kg

DRUGS (3)
  1. ZOLOFT [Suspect]
     Active Substance: SERTRALINE HYDROCHLORIDE
     Dosage: 50 MG, 2X/DAY
     Route: 048
     Dates: start: 20180817, end: 20180827
  2. OU LAN NING [Concomitant]
     Active Substance: OLANZAPINE
     Indication: ANXIETY
     Dosage: 1.25 MG, 1X/DAY
     Route: 048
     Dates: start: 20180816, end: 20180827
  3. ZOLOFT [Suspect]
     Active Substance: SERTRALINE HYDROCHLORIDE
     Indication: ANXIETY
     Dosage: 25 MG, 1X/DAY
     Route: 048
     Dates: start: 20180817

REACTIONS (1)
  - Hepatocellular injury [Unknown]

NARRATIVE: CASE EVENT DATE: 20180827
